FAERS Safety Report 5799309-9 (Version None)
Quarter: 2008Q3

REPORT INFORMATION
  Report Type: 
  Country: None (occurrence: None)
  Receive Date: 20080701
  Receipt Date: 20080616
  Transmission Date: 20090109
  Serious: Yes (Death)
  Sender: FDA-Public Use
  Company Number: 2008AL007300

PATIENT
  Age: 81 Year
  Sex: Male

DRUGS (2)
  1. DIGOXIN [Suspect]
     Indication: ARRHYTHMIA
  2. LASIX [Concomitant]

REACTIONS (3)
  - FALL [None]
  - FATIGUE [None]
  - SUDDEN DEATH [None]
